FAERS Safety Report 20328090 (Version 2)
Quarter: 2022Q2

REPORT INFORMATION
  Report Type: Spontaneous
  Country: US (occurrence: US)
  Receive Date: 20220112
  Receipt Date: 20220526
  Transmission Date: 20220720
  Serious: Yes (Other)
  Sender: FDA-Public Use
  Company Number: US-GW PHARMA-202201USGW00056

PATIENT

DRUGS (10)
  1. EPIDIOLEX [Suspect]
     Active Substance: CANNABIDIOL
     Indication: Lennox-Gastaut syndrome
     Dosage: 350 MILLIGRAM, FREQUENCY NOT REPORTED, (INITIAL DOSE UNKOWN)
     Route: 048
     Dates: start: 20211216
  2. EPIDIOLEX [Suspect]
     Active Substance: CANNABIDIOL
     Dosage: 12 MILLILITER
     Route: 048
     Dates: start: 20210409
  3. ONFI [Suspect]
     Active Substance: CLOBAZAM
     Indication: Product used for unknown indication
     Dosage: 60 MILLIGRAM, QD
     Route: 065
  4. ONFI [Suspect]
     Active Substance: CLOBAZAM
     Dosage: 20 MILLIGRAM, BID
     Route: 065
  5. ONFI [Suspect]
     Active Substance: CLOBAZAM
     Dosage: 20 MILLIGRAM, BID
     Route: 065
  6. ONFI [Suspect]
     Active Substance: CLOBAZAM
     Dosage: 60 MILLIGRAM, QD
     Route: 065
  7. DEPAKOTE [Suspect]
     Active Substance: DIVALPROEX SODIUM
     Indication: Product used for unknown indication
     Dosage: UNK
     Route: 065
  8. DEPAKOTE [Suspect]
     Active Substance: DIVALPROEX SODIUM
     Dosage: UNK
     Route: 065
  9. CLONAZEPAM [Concomitant]
     Active Substance: CLONAZEPAM
     Indication: Seizure
     Dosage: 2 MILLIGRAM
     Route: 065
  10. MELATONIN [Concomitant]
     Active Substance: MELATONIN
     Indication: Product used for unknown indication
     Dosage: UNK
     Route: 065

REACTIONS (7)
  - Seizure [Unknown]
  - Surgery [Unknown]
  - Middle insomnia [Unknown]
  - Insomnia [Unknown]
  - Decreased appetite [Recovering/Resolving]
  - Weight decreased [Unknown]
  - Somnolence [Recovered/Resolved]

NARRATIVE: CASE EVENT DATE: 20220401
